FAERS Safety Report 8083353-5 (Version None)
Quarter: 2012Q1

REPORT INFORMATION
  Report Type: 
  Country: None (occurrence: None)
  Receive Date: 20120127
  Receipt Date: 20110118
  Transmission Date: 20120608
  Serious: No
  Sender: FDA-Public Use
  Company Number: US-ABBOTT-11P-163-0697786-00

PATIENT
  Sex: Female
  Weight: 72.64 kg

DRUGS (5)
  1. HUMIRA [Suspect]
     Indication: PYODERMA GANGRENOSUM
     Route: 058
     Dates: start: 20101001
  2. MAGNESIUM SUPPLEMENT [Concomitant]
     Indication: ERYTHROMELALGIA
     Route: 048
     Dates: start: 20090101
  3. PROPRANOLOL [Concomitant]
     Indication: ERYTHROMELALGIA
     Route: 048
  4. LYRICA [Concomitant]
     Indication: ERYTHROMELALGIA
     Route: 048
  5. MS CONTIN [Concomitant]
     Indication: PAIN
     Route: 048

REACTIONS (1)
  - ERYTHROMELALGIA [None]
